FAERS Safety Report 13461549 (Version 1)
Quarter: 2017Q2

REPORT INFORMATION
  Report Type: Report from Study
  Country: US (occurrence: US)
  Receive Date: 20170420
  Receipt Date: 20170420
  Transmission Date: 20170830
  Serious: Yes (Hospitalization, Other)
  Sender: FDA-Public Use
  Company Number: US-REGENERON PHARMACEUTICALS, INC.-2017-14457

PATIENT

DRUGS (1)
  1. EYLEA [Suspect]
     Active Substance: AFLIBERCEPT
     Indication: MACULAR DEGENERATION
     Dosage: UNK, RIGHT EYE
     Route: 031
     Dates: start: 20161124

REACTIONS (2)
  - Hospitalisation [Unknown]
  - Radical cystectomy [Unknown]

NARRATIVE: CASE EVENT DATE: 2016
